FAERS Safety Report 10423841 (Version 2)
Quarter: 2014Q4

REPORT INFORMATION
  Report Type: Spontaneous
  Country: US (occurrence: None)
  Receive Date: 20140722
  Receipt Date: 20141121
  Transmission Date: 20150528
  Serious: No
  Sender: FDA-Public Use
  Company Number: 163-10004-14061865

PATIENT
  Age: 68 Year
  Sex: Female
  Weight: 95.26 kg

DRUGS (8)
  1. OTEZLA [Suspect]
     Active Substance: APREMILAST
     Indication: PSORIATIC ARTHROPATHY
     Route: 048
     Dates: start: 20140529
  2. ALPRAZOLAM. [Concomitant]
     Active Substance: ALPRAZOLAM
  3. VITAMIN D (ERGOCALCIFEROL) [Concomitant]
     Active Substance: ERGOCALCIFEROL
  4. NEXIUM [Concomitant]
     Active Substance: ESOMEPRAZOLE MAGNESIUM
  5. CLARITIN [Concomitant]
     Active Substance: LORATADINE
  6. JANUMET [Concomitant]
     Active Substance: METFORMIN HYDROCHLORIDE\SITAGLIPTIN PHOSPHATE
  7. CALCIUM (CALCIUM) [Concomitant]
     Active Substance: CALCIUM
  8. MOBIC [Concomitant]
     Active Substance: MELOXICAM

REACTIONS (4)
  - Nausea [None]
  - Muscle spasms [None]
  - Condition aggravated [None]
  - Malaise [None]

NARRATIVE: CASE EVENT DATE: 2014
